FAERS Safety Report 15571761 (Version 1)
Quarter: 2018Q4

REPORT INFORMATION
  Report Type: Spontaneous
  Country: CM (occurrence: CM)
  Receive Date: 20181031
  Receipt Date: 20181031
  Transmission Date: 20190205
  Serious: Yes (Other)
  Sender: FDA-Public Use
  Company Number: CM-ASTRAZENECA-2018SF42124

PATIENT
  Age: 72 Year
  Sex: Male

DRUGS (1)
  1. SYMBICORT [Suspect]
     Active Substance: BUDESONIDE\FORMOTEROL FUMARATE DIHYDRATE
     Dosage: 400/12 ?G UNKNOWN UNKNOWN
     Route: 055

REACTIONS (2)
  - Toxic epidermal necrolysis [Unknown]
  - Skin depigmentation [Unknown]
